FAERS Safety Report 8467584 (Version 5)
Quarter: 2013Q3

REPORT INFORMATION
  Report Type: Report from Study
  Country: DE (occurrence: DE)
  Receive Date: 20120320
  Receipt Date: 20130730
  Transmission Date: 20140515
  Serious: Yes (Life-Threatening, Hospitalization, Other)
  Sender: FDA-Public Use
  Company Number: DE-VERTEX PHARMACEUTICALS INC.-000000000000000353

PATIENT
  Age: 66 Year
  Sex: Male
  Weight: 80 kg

DRUGS (8)
  1. INCIVO [Suspect]
     Indication: HEPATITIS C
     Dosage: UNK
     Route: 048
     Dates: start: 20120120, end: 20120413
  2. RIBAVIRIN [Concomitant]
     Indication: HEPATITIS C
     Dosage: UNK
     Route: 065
     Dates: start: 20120120
  3. RIBAVIRIN [Concomitant]
     Dosage: 600 MG, UNK
     Route: 065
  4. PEGASYS [Concomitant]
     Indication: HEPATITIS C
     Dosage: 135 ?G, QW
     Route: 065
     Dates: start: 20120120
  5. LANTUS [Concomitant]
     Dosage: 14 IU, UNK
  6. LANTUS [Concomitant]
     Dosage: DOSAGE FORM: INJECTION
  7. APIDRA [Concomitant]
     Route: 065
  8. EUCREAS [Concomitant]
     Dosage: UNK

REACTIONS (7)
  - Leukopenia [Unknown]
  - Gastrointestinal haemorrhage [Recovered/Resolved]
  - Anaemia [Recovered/Resolved]
  - Thrombocytopenia [Unknown]
  - Vertigo [Recovered/Resolved]
  - Hypotonia [Recovered/Resolved]
  - Rash pustular [Unknown]
